FAERS Safety Report 24703960 (Version 5)
Quarter: 2024Q4

REPORT INFORMATION
  Report Type: Report from Study
  Country: CA (occurrence: CA)
  Receive Date: 20241206
  Receipt Date: 20241231
  Transmission Date: 20250115
  Serious: No
  Sender: ROCHE
  Company Number: CA-ROCHE-10000125175

PATIENT
  Sex: Female

DRUGS (2)
  1. OCREVUS [Suspect]
     Active Substance: OCRELIZUMAB
     Indication: Relapsing-remitting multiple sclerosis
     Dosage: 600 MG EVERY 6 MONTHS
     Route: 042
     Dates: start: 20220423
  2. OCREVUS [Suspect]
     Active Substance: OCRELIZUMAB
     Dosage: 600 MG EVERY 6 MONTHS
     Route: 042

REACTIONS (14)
  - Stress [Not Recovered/Not Resolved]
  - Depressed mood [Recovered/Resolved]
  - Emotional distress [Recovered/Resolved]
  - Nervousness [Recovered/Resolved]
  - Pain in extremity [Not Recovered/Not Resolved]
  - Fatigue [Not Recovered/Not Resolved]
  - Affect lability [Recovered/Resolved]
  - Anger [Unknown]
  - Influenza [Not Recovered/Not Resolved]
  - Muscle tightness [Not Recovered/Not Resolved]
  - Infection [Unknown]
  - Muscular weakness [Unknown]
  - Muscular weakness [Unknown]
  - Nasopharyngitis [Unknown]
